FAERS Safety Report 5337403-7 (Version None)
Quarter: 2007Q1

REPORT INFORMATION
  Report Type: 
  Country: None (occurrence: None)
  Receive Date: 20070309
  Receipt Date: 20060424
  Transmission Date: 20070707
  Serious: Yes (Other)
  Sender: FDA-Public Use
  Company Number: US200604001086

PATIENT
  Age: 77 Year
  Sex: Female
  Weight: 46 kg

DRUGS (5)
  1. GEMZAR [Suspect]
     Indication: PANCREATIC CARCINOMA METASTATIC
     Dosage: 1400 MG, OTHER, INTRAVENOUS
     Route: 042
     Dates: start: 20060327, end: 20060403
  2. TESSALON [Concomitant]
  3. PALONOSETRON (PALONOSTRON) [Concomitant]
  4. DECADRON [Concomitant]
  5. ATIVAN [Concomitant]

REACTIONS (3)
  - NAUSEA [None]
  - PYREXIA [None]
  - RASH MACULO-PAPULAR [None]
